FAERS Safety Report 4730641-3 (Version None)
Quarter: 2005Q3

REPORT INFORMATION
  Report Type: 
  Country: None (occurrence: None)
  Receive Date: 20050725
  Receipt Date: 20050304
  Transmission Date: 20060218
  Serious: No
  Sender: FDA-Public Use
  Company Number: USA050392443

PATIENT
  Age: 44 Year
  Sex: Male

DRUGS (2)
  1. STRATTERA [Suspect]
     Indication: ATTENTION DEFICIT/HYPERACTIVITY DISORDER
     Dosage: 40 MG
     Dates: start: 20050201, end: 20050304
  2. VIAGRA [Concomitant]

REACTIONS (8)
  - DECREASED APPETITE [None]
  - DRUG EFFECT DECREASED [None]
  - DRY MOUTH [None]
  - DYSURIA [None]
  - HEART RATE INCREASED [None]
  - LIBIDO DISORDER [None]
  - NERVOUSNESS [None]
  - TESTICULAR PAIN [None]
